FAERS Safety Report 18555448 (Version 6)
Quarter: 2021Q3

REPORT INFORMATION
  Report Type: Spontaneous
  Country: DE (occurrence: DE)
  Receive Date: 20201127
  Receipt Date: 20210903
  Transmission Date: 20211014
  Serious: Yes (Other)
  Sender: FDA-Public Use
  Company Number: DE-BAUSCH-BL-2020-034026

PATIENT
  Age: 87 Year
  Sex: Female

DRUGS (8)
  1. LERCANIDIPINE [Concomitant]
     Active Substance: LERCANIDIPINE
     Indication: PRODUCT USED FOR UNKNOWN INDICATION
     Dosage: FOR MANY YEARS
  2. TIM?OPHTAL 0.25% [Suspect]
     Active Substance: TIMOLOL
     Indication: INTRAOCULAR PRESSURE INCREASED
     Dosage: IN THE LEFT EYE, MORNING AND EVENING
     Route: 047
     Dates: start: 20201127, end: 202101
  3. SIMBRINZA [Concomitant]
     Active Substance: BRIMONIDINE TARTRATE\BRINZOLAMIDE
     Indication: INTRAOCULAR PRESSURE INCREASED
     Dosage: 10MG/ML/ 2 MG/ML
     Route: 047
     Dates: start: 202010
  4. TIM?OPHTAL 0.5% [Suspect]
     Active Substance: TIMOLOL MALEATE
     Indication: INTRAOCULAR PRESSURE INCREASED
     Dosage: LEFT EYE
     Route: 047
     Dates: start: 202010, end: 20201127
  5. LATANOPROST. [Suspect]
     Active Substance: LATANOPROST
     Indication: INTRAOCULAR PRESSURE INCREASED
     Dosage: IN THE LEFT AND RIGHT EYE
     Route: 047
     Dates: start: 202010
  6. METOPROLOL. [Concomitant]
     Active Substance: METOPROLOL
     Indication: PRODUCT USED FOR UNKNOWN INDICATION
     Dosage: FOR MANY YEARS
  7. BEPANTHEN [Concomitant]
     Indication: PRODUCT USED FOR UNKNOWN INDICATION
     Dates: start: 20201215
  8. LOSARTAN. [Concomitant]
     Active Substance: LOSARTAN
     Indication: PRODUCT USED FOR UNKNOWN INDICATION
     Dosage: FOR MANY YEARS

REACTIONS (13)
  - Photophobia [Not Recovered/Not Resolved]
  - Loss of personal independence in daily activities [Not Recovered/Not Resolved]
  - Palpitations [Not Recovered/Not Resolved]
  - Foreign body sensation in eyes [Not Recovered/Not Resolved]
  - Eye irritation [Recovering/Resolving]
  - Dry eye [Not Recovered/Not Resolved]
  - Miosis [Not Recovered/Not Resolved]
  - Visual acuity reduced [Recovering/Resolving]
  - Eye pruritus [Recovering/Resolving]
  - Ocular hyperaemia [Not Recovered/Not Resolved]
  - Alopecia [Recovering/Resolving]
  - Reaction to preservatives [Not Recovered/Not Resolved]
  - Initial insomnia [Not Recovered/Not Resolved]

NARRATIVE: CASE EVENT DATE: 2020
